FAERS Safety Report 9511691 (Version 1)
Quarter: 2013Q3

REPORT INFORMATION
  Report Type: Spontaneous
  Country: US (occurrence: US)
  Receive Date: 20130910
  Receipt Date: 20130910
  Transmission Date: 20140515
  Serious: Yes (Hospitalization)
  Sender: FDA-Public Use
  Company Number: US-SANOFI-AVENTIS-2013SA089288

PATIENT
  Age: 53 Year
  Sex: Female

DRUGS (2)
  1. DIABETA [Suspect]
     Route: 065
  2. METFORMIN [Suspect]
     Route: 065

REACTIONS (2)
  - Pneumonia [Unknown]
  - Blood glucose abnormal [Unknown]
